FAERS Safety Report 4700908-3 (Version None)
Quarter: 2005Q2

REPORT INFORMATION
  Report Type: 
  Country: None (occurrence: None)
  Receive Date: 20050113
  Receipt Date: 20050113
  Transmission Date: 20051028
  Serious: Yes (Other)
  Sender: FDA-Public Use
  Company Number: None

PATIENT
  Age: 37 Year
  Sex: Female
  Weight: 66.6788 kg

DRUGS (4)
  1. OXYCONTIN [Suspect]
     Indication: NECK PAIN
     Dosage: 80MG
  2. AMBIEN [Concomitant]
  3. FLEXERIL [Concomitant]
  4. NEXIUM [Concomitant]

REACTIONS (3)
  - ABDOMINAL DISCOMFORT [None]
  - PRURITUS [None]
  - THERAPEUTIC RESPONSE UNEXPECTED WITH DRUG SUBSTITUTION [None]
